FAERS Safety Report 6732234-5 (Version None)
Quarter: 2010Q2

REPORT INFORMATION
  Report Type: 
  Country: None (occurrence: None)
  Receive Date: 20100519
  Receipt Date: 20100510
  Transmission Date: 20101027
  Serious: Yes (Hospitalization)
  Sender: FDA-Public Use
  Company Number: A0858688A

PATIENT
  Age: 83 Year
  Sex: Female

DRUGS (5)
  1. AVANDIA [Suspect]
     Route: 048
     Dates: start: 20030628, end: 20070220
  2. ZOCOR [Concomitant]
  3. LANTUS [Concomitant]
  4. ALBUTEROL [Concomitant]
  5. ACCUPRIL [Concomitant]

REACTIONS (3)
  - CARDIOMYOPATHY [None]
  - CORONARY ARTERY DISEASE [None]
  - MYOCARDIAL INFARCTION [None]
